FAERS Safety Report 8979118 (Version 1)
Quarter: 2012Q4

REPORT INFORMATION
  Report Type: 
  Country: CA (occurrence: CA)
  Receive Date: 20121221
  Receipt Date: 20121221
  Transmission Date: 20130627
  Serious: Yes (Other)
  Sender: FDA-Public Use
  Company Number: CA-GLAXOSMITHKLINE-A1000047A

PATIENT
  Age: 39 Year
  Sex: Female

DRUGS (8)
  1. VOTRIENT [Suspect]
     Indication: RENAL CANCER METASTATIC
     Dosage: 800MG Per day
     Route: 048
     Dates: start: 20121103, end: 20121219
  2. SYNTHROID [Concomitant]
  3. WELLBUTRIN [Concomitant]
  4. PANTOPRAZOLE MAGNESIUM [Concomitant]
  5. ZOPICLONE [Concomitant]
  6. ATIVAN [Concomitant]
  7. MIRAPEX [Concomitant]
  8. UNKNOWN MEDICATION [Concomitant]

REACTIONS (4)
  - Fatigue [Not Recovered/Not Resolved]
  - Hypersomnia [Not Recovered/Not Resolved]
  - Hepatic enzyme increased [Unknown]
  - Renal impairment [Unknown]
